FAERS Safety Report 6090985-2 (Version None)
Quarter: 2009Q1

REPORT INFORMATION
  Report Type: 
  Country: None (occurrence: None)
  Receive Date: 20090219
  Receipt Date: 20090219
  Transmission Date: 20090719
  Serious: Yes (Other)
  Sender: FDA-Public Use
  Company Number: None

PATIENT
  Sex: Male
  Weight: 93.8946 kg

DRUGS (2)
  1. LUNESTA [Suspect]
     Indication: INSOMNIA
     Dates: start: 20090123
  2. LUNESTA [Suspect]
     Indication: INSOMNIA
     Dates: start: 20090124

REACTIONS (1)
  - ABDOMINAL DISCOMFORT [None]
